FAERS Safety Report 25663039 (Version 1)
Quarter: 2025Q3

REPORT INFORMATION
  Report Type: Spontaneous
  Country: US (occurrence: US)
  Receive Date: 20250811
  Receipt Date: 20250811
  Transmission Date: 20251020
  Serious: Yes (Other)
  Sender: UNILEVER
  Company Number: US-Unilever-2182232

PATIENT
  Age: 25 Year
  Sex: Female

DRUGS (1)
  1. DOVE (ALUMINUM SESQUICHLOROHYDRATE) [Suspect]
     Active Substance: ALUMINUM SESQUICHLOROHYDRATE

REACTIONS (4)
  - Cyst [Unknown]
  - Bacterial infection [Unknown]
  - Abscess drainage [Unknown]
  - Bloody discharge [Unknown]

NARRATIVE: CASE EVENT DATE: 20250324
